FAERS Safety Report 12918354 (Version 1)
Quarter: 2016Q4

REPORT INFORMATION
  Report Type: Spontaneous
  Country: BR (occurrence: BR)
  Receive Date: 20161107
  Receipt Date: 20161107
  Transmission Date: 20170207
  Serious: Yes (Other)
  Sender: FDA-Public Use
  Company Number: BR-FRESENIUS KABI-FK201608476

PATIENT
  Age: 3 Year
  Sex: Female

DRUGS (1)
  1. PROPRANOLOL HYDROCHLORIDE (MANUFACTURER UNKNOWN) [Suspect]
     Active Substance: PROPRANOLOL HYDROCHLORIDE
     Indication: PROPHYLAXIS
     Route: 065

REACTIONS (3)
  - Seizure [Unknown]
  - Hypotension [Unknown]
  - Product use issue [Unknown]
